FAERS Safety Report 9128082 (Version 1)
Quarter: 2013Q1

REPORT INFORMATION
  Report Type: Spontaneous
  Country: US (occurrence: US)
  Receive Date: 20130228
  Receipt Date: 20130228
  Transmission Date: 20140127
  Serious: Yes (Other)
  Sender: FDA-Public Use
  Company Number: US-PFIZER INC-2013066510

PATIENT
  Age: 23 Year
  Sex: Female
  Weight: 56.69 kg

DRUGS (2)
  1. BENEFIX [Suspect]
     Indication: PROPHYLAXIS
     Dosage: 15 IU/KG, WEEKLY
  2. BENEFIX [Suspect]
     Indication: FACTOR IX DEFICIENCY

REACTIONS (2)
  - Haemorrhage [Unknown]
  - Off label use [Unknown]
